FAERS Safety Report 5524879-5 (Version None)
Quarter: 2007Q4

REPORT INFORMATION
  Report Type: 
  Country: None (occurrence: None)
  Receive Date: 20071119
  Receipt Date: 20071113
  Transmission Date: 20080405
  Serious: Yes (Hospitalization)
  Sender: FDA-Public Use
  Company Number: 009-C5013-07110680

PATIENT
  Age: 84 Year
  Sex: Male

DRUGS (3)
  1. CC-5013/PLACEBO (LENALIDOMIDE) (CAPSULES) [Suspect]
     Indication: MULTIPLE MYELOMA
     Dosage: 10 MG, DAILY, ORAL
     Route: 048
     Dates: start: 20070919, end: 20071113
  2. MELPHALAN (MELPHALAN) [Suspect]
     Indication: MULTIPLE MYELOMA
     Dosage: 12 MG, DAILY, ORAL
     Route: 048
     Dates: start: 20070919, end: 20071113
  3. PREDNISONE [Suspect]
     Indication: MULTIPLE MYELOMA
     Dosage: 136 MG, DAILY, ORAL
     Route: 048
     Dates: start: 20070919, end: 20071113

REACTIONS (2)
  - GENERAL PHYSICAL HEALTH DETERIORATION [None]
  - NEUTROPENIA [None]
